FAERS Safety Report 5422958-4 (Version None)
Quarter: 2007Q3

REPORT INFORMATION
  Report Type: 
  Country: None (occurrence: None)
  Receive Date: 20070820
  Receipt Date: 20070808
  Transmission Date: 20080115
  Serious: Yes (Hospitalization, Other)
  Sender: FDA-Public Use
  Company Number: 236659K07USA

PATIENT
  Age: 62 Year
  Sex: Female

DRUGS (8)
  1. REBIF [Suspect]
     Indication: MULTIPLE SCLEROSIS
     Dosage: 44 MCG, 3 IN 1 WEEKS, SUBCUTANEOUS
     Route: 058
     Dates: start: 20021217
  2. DYAZIDE [Concomitant]
  3. POTASSIUM CHLORIDE [Concomitant]
  4. MICRONASE [Concomitant]
  5. METFORMIN HCL [Concomitant]
  6. LASIX [Concomitant]
  7. NON-STEROIDAL INHALER (ANTI-ASTHMATICS) [Concomitant]
  8. BACLOFEN [Concomitant]

REACTIONS (4)
  - ABDOMINAL MASS [None]
  - GOITRE [None]
  - IMPAIRED HEALING [None]
  - SYSTEMIC LUPUS ERYTHEMATOSUS [None]
